FAERS Safety Report 5725567-2 (Version None)
Quarter: 2008Q2

REPORT INFORMATION
  Report Type: 
  Country: None (occurrence: None)
  Receive Date: 20080501
  Receipt Date: 20080421
  Transmission Date: 20081010
  Serious: Yes (Hospitalization)
  Sender: FDA-Public Use
  Company Number: CA-ELI_LILLY_AND_COMPANY-CA200802002110

PATIENT
  Age: 64 Year
  Sex: Male

DRUGS (4)
  1. FORTEO [Suspect]
     Indication: OSTEOPOROSIS
     Dosage: 20 UG, DAILY (1/D)
     Route: 058
     Dates: start: 20060830
  2. TYLENOL W/ CODEINE NO. 3 [Concomitant]
  3. CLONAZEPAM [Concomitant]
  4. VITAMIN D [Concomitant]

REACTIONS (2)
  - NAUSEA [None]
  - SINUSITIS [None]
